FAERS Safety Report 15207321 (Version 1)
Quarter: 2018Q3

REPORT INFORMATION
  Report Type: Spontaneous
  Country: JP (occurrence: JP)
  Receive Date: 20180727
  Receipt Date: 20180727
  Transmission Date: 20181010
  Serious: Yes (Hospitalization, Other)
  Sender: FDA-Public Use
  Company Number: JP-PFIZER INC-2018294044

PATIENT
  Age: 58 Year
  Sex: Female

DRUGS (2)
  1. LOCHOL /00638501/ [Suspect]
     Active Substance: FLUVASTATIN SODIUM
     Indication: HYPERCHOLESTEROLAEMIA
     Dosage: UNK
     Route: 048
     Dates: start: 20001102, end: 20010711
  2. LIPITOR [Suspect]
     Active Substance: ATORVASTATIN CALCIUM
     Indication: HYPERCHOLESTEROLAEMIA
     Dosage: UNK
     Route: 048
     Dates: start: 20010712, end: 20010830

REACTIONS (3)
  - Muscle rupture [Recovered/Resolved]
  - Tendon injury [Recovered/Resolved]
  - Drug ineffective [Unknown]
